FAERS Safety Report 4370377-4 (Version None)
Quarter: 2004Q2

REPORT INFORMATION
  Report Type: 
  Country: None (occurrence: None)
  Receive Date: 20040603
  Receipt Date: 20040220
  Transmission Date: 20050107
  Serious: Yes (Other)
  Sender: FDA-Public Use
  Company Number: US-BRISTOL-MYERS SQUIBB COMPANY-12514592

PATIENT
  Age: 11 Year
  Sex: Male

DRUGS (5)
  1. ABILIFY [Suspect]
     Indication: TOURETTE'S DISORDER
     Route: 048
     Dates: start: 20040121, end: 20040124
  2. CLONAZEPAM [Concomitant]
  3. STRATTERA [Concomitant]
     Dosage: 50 MG IN AM; 25 MG AT NIGHT
  4. TOFRANIL [Concomitant]
  5. ZYRTEC [Concomitant]

REACTIONS (1)
  - DYSTONIA [None]
